FAERS Safety Report 14150544 (Version 1)
Quarter: 2017Q4

REPORT INFORMATION
  Report Type: Other
  Country: US (occurrence: US)
  Receive Date: 20171101
  Receipt Date: 20171101
  Transmission Date: 20180321
  Serious: Yes (Other)
  Sender: FDA-Public Use
  Company Number: US-THE PROACTIV LLC-2032994

PATIENT
  Sex: Female

DRUGS (4)
  1. PROACTIV RENEWING CLEANSER [Suspect]
     Active Substance: BENZOYL PEROXIDE
     Route: 061
     Dates: start: 20170824, end: 20170825
  2. PROACTIV SOLUTION ADVANCED DAILY OIL CONTROL [Suspect]
     Active Substance: SALICYLIC ACID
     Route: 061
     Dates: start: 20170824, end: 20170825
  3. PROACTIV SOLUTION OIL FREE MOISTURE SPF 15 MOISTURIZER [Suspect]
     Active Substance: OCTINOXATE\ZINC OXIDE
     Indication: ACNE
     Route: 061
     Dates: start: 20170824, end: 20170825
  4. PROACTIV REPAIRING TREATMENT [Suspect]
     Active Substance: BENZOYL PEROXIDE
     Route: 061
     Dates: start: 20170824, end: 20170825

REACTIONS (2)
  - Rash [Recovered/Resolved]
  - Seizure [Recovered/Resolved]

NARRATIVE: CASE EVENT DATE: 20170825
